FAERS Safety Report 15838556 (Version 1)
Quarter: 2018Q4

REPORT INFORMATION
  Report Type: Spontaneous
  Country: US (occurrence: US)
  Receive Date: 20181222
  Receipt Date: 20181222
  Transmission Date: 20190205
  Serious: No
  Sender: FDA-Public Use
  Company Number: None

PATIENT
  Age: 65 Year
  Sex: Female

DRUGS (3)
  1. ALENDRONATE RANITIDINE [Concomitant]
  2. IBRANCE [Suspect]
     Active Substance: PALBOCICLIB
     Route: 048
     Dates: start: 20180220
  3. FASLODEX [Concomitant]
     Active Substance: FULVESTRANT

REACTIONS (2)
  - Fatigue [None]
  - Insomnia [None]

NARRATIVE: CASE EVENT DATE: 20181206
